FAERS Safety Report 13208291 (Version 1)
Quarter: 2017Q1

REPORT INFORMATION
  Report Type: Spontaneous
  Country: US (occurrence: US)
  Receive Date: 20170209
  Receipt Date: 20170209
  Transmission Date: 20170428
  Serious: No
  Sender: FDA-Public Use
  Company Number: US-ROCHE-1713669

PATIENT
  Age: 15 Year

DRUGS (1)
  1. XOLAIR [Suspect]
     Active Substance: OMALIZUMAB
     Indication: RASH ERYTHEMATOUS
     Route: 065

REACTIONS (2)
  - Rash [Unknown]
  - Scar [Unknown]
